FAERS Safety Report 6643149-5 (Version None)
Quarter: 2010Q1

REPORT INFORMATION
  Report Type: 
  Country: None (occurrence: None)
  Receive Date: 20100319
  Receipt Date: 20100309
  Transmission Date: 20100710
  Serious: Yes (Other)
  Sender: FDA-Public Use
  Company Number: PHHY2010DE15291

PATIENT
  Sex: Male
  Weight: 98 kg

DRUGS (3)
  1. EXFORGE [Suspect]
     Indication: HYPERTENSION
     Dosage: 160/5 MG PER DAY
     Route: 048
     Dates: start: 20090602
  2. EXFORGE [Suspect]
     Dosage: 80/5 MG PER DAY
     Route: 048
     Dates: start: 20091210
  3. METOPROLOL TARTRATE [Concomitant]

REACTIONS (2)
  - BRONCHIAL HYPERREACTIVITY [None]
  - SARCOIDOSIS [None]
